FAERS Safety Report 13579483 (Version 1)
Quarter: 2017Q2

REPORT INFORMATION
  Report Type: Spontaneous
  Country: RU (occurrence: RU)
  Receive Date: 20170525
  Receipt Date: 20170525
  Transmission Date: 20170830
  Serious: Yes (Other)
  Sender: FDA-Public Use
  Company Number: RU-009507513-1705RUS011487

PATIENT
  Age: 79 Year
  Sex: Female

DRUGS (2)
  1. TEDIZOLID PHOSPHATE [Suspect]
     Active Substance: TEDIZOLID PHOSPHATE
     Dosage: UNK
     Route: 048
  2. DORIPENEM. [Suspect]
     Active Substance: DORIPENEM
     Dosage: UNK

REACTIONS (4)
  - Mechanical ventilation [Unknown]
  - Blood lactic acid increased [Unknown]
  - Asthenia [Unknown]
  - Off label use [Unknown]
